FAERS Safety Report 13775533 (Version 2)
Quarter: 2018Q2

REPORT INFORMATION
  Report Type: Spontaneous
  Country: MY (occurrence: MY)
  Receive Date: 20170720
  Receipt Date: 20180504
  Transmission Date: 20180711
  Serious: Yes (Life-Threatening)
  Sender: FDA-Public Use
  Company Number: MY-PFIZER INC-HOS1700573

PATIENT
  Age: 24 Year
  Sex: Male

DRUGS (2)
  1. MAGNESIUM SULFATE. [Suspect]
     Active Substance: MAGNESIUM SULFATE
     Indication: RHONCHI
     Dosage: 3 MG, ONCE
     Route: 042
  2. OFRAMAX [Suspect]
     Active Substance: CEFTRIAXONE SODIUM
     Indication: PNEUMONIA
     Dosage: 1 G, ONCE
     Route: 042

REACTIONS (2)
  - Anaphylactic shock [Recovered/Resolved]
  - Product use in unapproved indication [Unknown]

NARRATIVE: CASE EVENT DATE: 20111218
